FAERS Safety Report 14939013 (Version 2)
Quarter: 2018Q3

REPORT INFORMATION
  Report Type: Report from Study
  Country: US (occurrence: US)
  Receive Date: 20180525
  Receipt Date: 20180703
  Transmission Date: 20181010
  Serious: Yes (Other)
  Sender: FDA-Public Use
  Company Number: US-ADAMAS PHARMA, LLC-2018ADA00381

PATIENT
  Age: 64 Year
  Sex: Female

DRUGS (19)
  1. PROPRANOLOL [Suspect]
     Active Substance: PROPRANOLOL HYDROCHLORIDE
     Indication: ANXIETY
     Dosage: UNK
     Dates: end: 201803
  2. FENTANYL. [Concomitant]
     Active Substance: FENTANYL
  3. VITAMIN D3 [Concomitant]
     Active Substance: CHOLECALCIFEROL
  4. KCL [Concomitant]
     Active Substance: POTASSIUM CHLORIDE
  5. OMEPRAZOLE. [Concomitant]
     Active Substance: OMEPRAZOLE
  6. PROPRANOLOL [Suspect]
     Active Substance: PROPRANOLOL HYDROCHLORIDE
     Dosage: UNK DECREASED DOSE
     Dates: start: 201803, end: 2018
  7. LORAZEPAM. [Concomitant]
     Active Substance: LORAZEPAM
  8. CYANOCOBALAMIN. [Concomitant]
     Active Substance: CYANOCOBALAMIN
  9. GOCOVRI [Suspect]
     Active Substance: AMANTADINE
     Dosage: 137 MG, 1X/DAY AT BEDTIME
     Route: 048
     Dates: start: 201803, end: 20180412
  10. CYMBALTA [Concomitant]
     Active Substance: DULOXETINE HYDROCHLORIDE
  11. FUROSEMIDE. [Concomitant]
     Active Substance: FUROSEMIDE
  12. MAGNESIUM [Concomitant]
     Active Substance: MAGNESIUM
  13. MIRAPEX [Concomitant]
     Active Substance: PRAMIPEXOLE DIHYDROCHLORIDE
  14. LEVOTHYROXINE. [Concomitant]
     Active Substance: LEVOTHYROXINE
  15. CALCIUM [Concomitant]
     Active Substance: CALCIUM
  16. CARB/LEVO [Concomitant]
     Active Substance: CARBIDOPA\LEVODOPA
  17. MIRTAZAPINE. [Concomitant]
     Active Substance: MIRTAZAPINE
  18. GOCOVRI [Suspect]
     Active Substance: AMANTADINE
     Indication: DYSKINESIA
     Dosage: 68.5 MG, 1X/DAY
     Route: 048
     Dates: start: 20180324, end: 201803
  19. MELATONIN [Concomitant]
     Active Substance: MELATONIN

REACTIONS (8)
  - Peripheral ischaemia [Recovering/Resolving]
  - Poor peripheral circulation [Recovered/Resolved]
  - Peripheral swelling [Unknown]
  - Dry gangrene [Recovering/Resolving]
  - Rash [Unknown]
  - Orthostatic hypotension [Unknown]
  - Skin fissures [Recovering/Resolving]
  - Drug ineffective [Recovered/Resolved]

NARRATIVE: CASE EVENT DATE: 201803
